FAERS Safety Report 7231462 (Version 3)
Quarter: 2013Q2

REPORT INFORMATION
  Report Type: Spontaneous
  Country: GB (occurrence: GB)
  Receive Date: 20091228
  Receipt Date: 20130422
  Transmission Date: 20140414
  Serious: Yes (Other)
  Sender: FDA-Public Use
  Company Number: GB-ROCHE-509345

PATIENT
  Age: 74 Year
  Sex: Male

DRUGS (4)
  1. AVASTIN [Suspect]
     Indication: AGE-RELATED MACULAR DEGENERATION
     Route: 050
  2. AVASTIN [Suspect]
     Indication: OFF LABEL USE
  3. ACTILYSE [Suspect]
     Indication: RETINAL HAEMORRHAGE
     Route: 050
  4. PERFLUOROPROPANE [Suspect]
     Indication: RETINAL HAEMORRHAGE
     Route: 050

REACTIONS (3)
  - Detachment of retinal pigment epithelium [Unknown]
  - Choroidal neovascularisation [Unknown]
  - Retinal pigment epithelial tear [Unknown]
